FAERS Safety Report 9136257 (Version 1)
Quarter: 2013Q1

REPORT INFORMATION
  Report Type: Spontaneous
  Country: US (occurrence: US)
  Receive Date: 20130304
  Receipt Date: 20130304
  Transmission Date: 20140127
  Serious: No
  Sender: FDA-Public Use
  Company Number: US-ABBOTT-12P-163-0991051-00

PATIENT
  Sex: Male
  Weight: 83.54 kg

DRUGS (5)
  1. ANDROGEL [Suspect]
     Indication: BLOOD TESTOSTERONE DECREASED
     Dosage: PACKETS
     Dates: start: 201209
  2. UNKNOWN MEDICATION [Concomitant]
     Indication: BLOOD PRESSURE
  3. UNKNOWN MEDICATION [Concomitant]
     Indication: DIABETES MELLITUS
  4. UNKNOWN MEDICATION [Concomitant]
     Indication: BLOOD CHOLESTEROL
  5. UNKNOWN MEDICATION [Concomitant]
     Indication: GLAUCOMA
     Route: 047

REACTIONS (5)
  - Discomfort [Not Recovered/Not Resolved]
  - Application site rash [Not Recovered/Not Resolved]
  - Insomnia [Not Recovered/Not Resolved]
  - Application site pruritus [Not Recovered/Not Resolved]
  - Tinea cruris [Unknown]
